FAERS Safety Report 12474350 (Version 1)
Quarter: 2016Q2

REPORT INFORMATION
  Report Type: Spontaneous
  Country: US (occurrence: None)
  Receive Date: 20160616
  Receipt Date: 20160616
  Transmission Date: 20160815
  Serious: Yes (Disabling)
  Sender: FDA-Public Use
  Company Number: None

PATIENT
  Age: 27 Year
  Sex: Female
  Weight: 92.99 kg

DRUGS (6)
  1. HYDROCORTISONE QUALITEST [Suspect]
     Active Substance: HYDROCORTISONE
     Indication: ADRENOGENITAL SYNDROME
     Dosage: 2.5 TABLETS TWICE A DAY
     Route: 048
     Dates: start: 20150101, end: 20160523
  2. HYDROCORTISONE QUALITEST [Suspect]
     Active Substance: HYDROCORTISONE
     Indication: CEREBRAL SALT-WASTING SYNDROME
     Dosage: 2.5 TABLETS TWICE A DAY
     Route: 048
     Dates: start: 20150101, end: 20160523
  3. GENERIC XANAX [Concomitant]
  4. FLUDRO CORTISONE [Concomitant]
  5. TRINTELLIX [Concomitant]
     Active Substance: VORTIOXETINE HYDROBROMIDE
  6. BIRTH CONTROL PILLS [Concomitant]
     Active Substance: UNSPECIFIED INGREDIENT

REACTIONS (7)
  - Depression [None]
  - Paraesthesia [None]
  - Product formulation issue [None]
  - Decreased appetite [None]
  - Product substitution issue [None]
  - Anxiety [None]
  - Headache [None]

NARRATIVE: CASE EVENT DATE: 20160523
